FAERS Safety Report 5625479-9 (Version None)
Quarter: 2008Q1

REPORT INFORMATION
  Report Type: 
  Country: None (occurrence: None)
  Receive Date: 20080207
  Receipt Date: 20080124
  Transmission Date: 20080703
  Serious: Yes (Hospitalization)
  Sender: FDA-Public Use
  Company Number: B0506203A

PATIENT
  Age: 48 Year
  Sex: Female

DRUGS (7)
  1. FORTAZ [Suspect]
     Indication: ACUTE MYELOID LEUKAEMIA
  2. DEXAMETHASONE [Suspect]
     Indication: ACUTE MYELOID LEUKAEMIA
  3. CIPROFLOXACIN [Suspect]
     Indication: ACUTE MYELOID LEUKAEMIA
  4. GENTAMICIN SULFATE [Suspect]
  5. AMIKACIN [Concomitant]
  6. VANCOMYCIN [Concomitant]
  7. TRETINOIN [Concomitant]

REACTIONS (9)
  - BLOOD CULTURE POSITIVE [None]
  - CONTUSION [None]
  - CULTURE POSITIVE [None]
  - ECTHYMA [None]
  - GANGRENE [None]
  - KLEBSIELLA INFECTION [None]
  - LETHARGY [None]
  - PSEUDOMONAS INFECTION [None]
  - STAPHYLOCOCCAL INFECTION [None]
